FAERS Safety Report 7624394-9 (Version None)
Quarter: 2011Q3

REPORT INFORMATION
  Report Type: 
  Country: None (occurrence: None)
  Receive Date: 20110720
  Receipt Date: 20110713
  Transmission Date: 20111222
  Serious: Yes (Death)
  Sender: FDA-Public Use
  Company Number: JP-PFIZER INC-2011088211

PATIENT
  Age: 78 Year
  Sex: Female
  Weight: 54 kg

DRUGS (16)
  1. SELBEX [Concomitant]
     Dosage: 50 MG, 3X/DAY
     Route: 048
     Dates: end: 20110420
  2. MUCOSTA [Concomitant]
     Dosage: 100 MG, 3X/DAY
     Route: 048
     Dates: end: 20110420
  3. ALLOID G [Concomitant]
     Dosage: 30 ML, 3X/DAY
     Route: 048
     Dates: end: 20110420
  4. LOSARTAN POTASSIUM [Concomitant]
     Dosage: 50 MG, 1X/DAY
     Route: 048
     Dates: end: 20110420
  5. DIART [Concomitant]
     Dosage: 30 MG, 1X/DAY
     Route: 048
     Dates: end: 20110420
  6. OXINORM [Concomitant]
     Dosage: 5 MG, AS NEEDED
     Route: 048
     Dates: end: 20110420
  7. LANSOPRAZOLE [Concomitant]
     Dosage: 30 MG, 1X/DAY
     Route: 048
     Dates: end: 20110420
  8. LYRICA [Concomitant]
     Dosage: 75 MG, 1X/DAY
     Route: 048
     Dates: start: 20110419, end: 20110420
  9. TEMSIROLIMUS [Suspect]
     Indication: RENAL CELL CARCINOMA
     Dosage: 25 MG, WEEKLY
     Route: 042
     Dates: start: 20110419, end: 20110419
  10. LOXONIN [Concomitant]
     Dosage: 60 MG, 3X/DAY
     Route: 048
     Dates: end: 20110420
  11. GASMOTIN [Concomitant]
     Dosage: 5 MG, 3X/DAY
     Route: 048
     Dates: end: 20110420
  12. FENTANYL-100 [Concomitant]
     Dosage: 4.2 MG, EVERY 3 DAY
     Route: 062
     Dates: end: 20110420
  13. VENA [Concomitant]
     Indication: PROPHYLAXIS
     Dosage: 30 MG, 1X/DAY
     Route: 048
     Dates: start: 20110419, end: 20110419
  14. PURSENNID [Concomitant]
     Dosage: 12 MG, 1X/DAY
     Route: 048
     Dates: end: 20110420
  15. MAGNESIUM SULFATE [Concomitant]
     Dosage: 330 MG, 2X/DAY
     Route: 048
     Dates: end: 20110420
  16. TELEMINSOFT [Concomitant]
     Dosage: 4 MG, AS NEEDED
     Route: 054
     Dates: end: 20110420

REACTIONS (1)
  - PULMONARY EMBOLISM [None]
